FAERS Safety Report 19271910 (Version 1)
Quarter: 2021Q2

REPORT INFORMATION
  Report Type: Spontaneous
  Country: US (occurrence: US)
  Receive Date: 20210519
  Receipt Date: 20210519
  Transmission Date: 20210717
  Serious: No
  Sender: FDA-Public Use
  Company Number: US-NOVEN PHARMACEUTICALS, INC.-2020US007817

PATIENT
  Age: 14 Year
  Sex: Female
  Weight: 87.98 kg

DRUGS (1)
  1. DAYTRANA [Suspect]
     Active Substance: METHYLPHENIDATE
     Indication: ATTENTION DEFICIT HYPERACTIVITY DISORDER
     Dosage: 10 MG/9 HOURS, 1 PATCH DAILY
     Route: 062
     Dates: start: 202010

REACTIONS (9)
  - Application site pruritus [Not Recovered/Not Resolved]
  - Agitation [Not Recovered/Not Resolved]
  - Product adhesion issue [Not Recovered/Not Resolved]
  - Incorrect dose administered by product [Not Recovered/Not Resolved]
  - Anger [Not Recovered/Not Resolved]
  - Aggression [Not Recovered/Not Resolved]
  - Application site paraesthesia [Not Recovered/Not Resolved]
  - Anxiety [Not Recovered/Not Resolved]
  - Product administered at inappropriate site [Not Recovered/Not Resolved]

NARRATIVE: CASE EVENT DATE: 202010
